FAERS Safety Report 6820271-1 (Version None)
Quarter: 2010Q3

REPORT INFORMATION
  Report Type: 
  Country: None (occurrence: None)
  Receive Date: 20100707
  Receipt Date: 20100628
  Transmission Date: 20110219
  Serious: No
  Sender: FDA-Public Use
  Company Number: US-BAYER-201026211NA

PATIENT
  Age: 63 Year
  Sex: Male
  Weight: 73 kg

DRUGS (4)
  1. LEVITRA [Suspect]
     Indication: PRODUCT USED FOR UNKNOWN INDICATION
     Route: 048
  2. CIALIS [Suspect]
     Indication: PRODUCT USED FOR UNKNOWN INDICATION
     Route: 048
  3. CARVEJECT [Suspect]
     Indication: ERECTILE DYSFUNCTION
     Route: 011
  4. ALPROSTADIL [Suspect]
     Indication: ERECTILE DYSFUNCTION

REACTIONS (1)
  - PAINFUL ERECTION [None]
